FAERS Safety Report 12317097 (Version 1)
Quarter: 2016Q2

REPORT INFORMATION
  Report Type: Spontaneous
  Country: CN (occurrence: CN)
  Receive Date: 20160429
  Receipt Date: 20160429
  Transmission Date: 20160815
  Serious: Yes (Death, Life-Threatening, Other)
  Sender: FDA-Public Use
  Company Number: CN-ACCORD-040110

PATIENT
  Age: 56 Year
  Sex: Female

DRUGS (10)
  1. METHOTREXATE [Suspect]
     Active Substance: METHOTREXATE
     Indication: CENTRAL NERVOUS SYSTEM LEUKAEMIA
     Route: 037
  2. EPIRUBICIN [Concomitant]
     Active Substance: EPIRUBICIN
     Indication: NON-HODGKIN^S LYMPHOMA STAGE III
     Route: 042
  3. DEXAMETHASONE. [Suspect]
     Active Substance: DEXAMETHASONE
     Indication: CENTRAL NERVOUS SYSTEM LEUKAEMIA
  4. LASPAR [Concomitant]
     Indication: B-CELL LYMPHOMA STAGE II
     Dosage: 10000U QOD X 5;Q21D
     Route: 042
  5. SODIUM CHLORIDE. [Concomitant]
     Active Substance: SODIUM CHLORIDE
     Indication: CENTRAL NERVOUS SYSTEM LEUKAEMIA
  6. PREDNISONE. [Suspect]
     Active Substance: PREDNISONE
     Indication: NON-HODGKIN^S LYMPHOMA STAGE III
     Dosage: AS DOCPL: DAY 1-5, 60 MG PO AND AS CTOAP: DAY 1-14, 60  MG PO Q21D
     Route: 048
  7. VINCRISTINE [Suspect]
     Active Substance: VINCRISTINE
     Indication: NON-HODGKIN^S LYMPHOMA STAGE III
     Dosage: AS DOCPL: DAY 1, 2 MG IV AND AS CTOAP: DAY 1, 2  MG IV
     Route: 042
  8. PIRARUBICIN [Suspect]
     Active Substance: PIRARUBICIN
     Indication: B-CELL LYMPHOMA STAGE II
     Dosage: AS DOCPL: DAY 1-3, 30 MG IV AND AS CTOAP: DAY 1-3, 40 MG IV
     Route: 042
  9. CYTARABINE/CYTARABINE HYDROCHLORIDE/CYTARABINE OCFOSFATE [Suspect]
     Active Substance: CYTARABINE
     Indication: DISEASE PROGRESSION
     Route: 042
  10. CYCLOPHOSPHAMIDE/CYCLOPHOSPHAMIDE MONOHYDRATE [Suspect]
     Active Substance: CYCLOPHOSPHAMIDE
     Indication: NON-HODGKIN^S LYMPHOMA STAGE III
     Dosage: AS DOCPL: DAY 1, 800 MG AND AS CTOAP: DAY 1, 1000 MG
     Route: 042

REACTIONS (3)
  - Decreased appetite [Unknown]
  - Asthenia [Unknown]
  - Bone marrow failure [Unknown]
